FAERS Safety Report 6521483-7 (Version None)
Quarter: 2009Q4

REPORT INFORMATION
  Report Type: 
  Country: None (occurrence: None)
  Receive Date: 20091214
  Receipt Date: 20090625
  Transmission Date: 20100525
  Serious: Yes (Other)
  Sender: FDA-Public Use
  Company Number: 641045

PATIENT
  Age: 53 Year
  Sex: Male

DRUGS (3)
  1. PEGASYS [Suspect]
     Indication: HEPATITIS C
     Dosage: 90 UG 1 PER 2 WEEK
     Dates: start: 20090603
  2. COPEGUS [Suspect]
     Indication: HEPATITIS C
     Dosage: 1 DOSE FORM 2 PER DAY
     Dates: start: 20090603
  3. INSULIN (INSULIN) [Concomitant]

REACTIONS (3)
  - PLATELET COUNT DECREASED [None]
  - RED BLOOD CELL COUNT DECREASED [None]
  - WHITE BLOOD CELL COUNT DECREASED [None]
